FAERS Safety Report 9602291 (Version 1)
Quarter: 2013Q4

REPORT INFORMATION
  Report Type: Spontaneous
  Country: DE (occurrence: None)
  Receive Date: 20131003
  Receipt Date: 20131003
  Transmission Date: 20140711
  Serious: Yes (Other)
  Sender: FDA-Public Use
  Company Number: 1309-1218

PATIENT
  Age: 78 Year
  Sex: Female

DRUGS (1)
  1. EYLEA [Suspect]
     Indication: AGE-RELATED MACULAR DEGENERATION
     Dosage: 1 IN 2 M
     Dates: start: 20130225

REACTIONS (5)
  - Drug effect decreased [None]
  - Balance disorder [None]
  - Vision blurred [None]
  - Visual field defect [None]
  - Visual acuity reduced [None]
